FAERS Safety Report 13066531 (Version 1)
Quarter: 2016Q4

REPORT INFORMATION
  Report Type: Report from Study
  Country: GB (occurrence: GB)
  Receive Date: 20161227
  Receipt Date: 20161227
  Transmission Date: 20170207
  Serious: No
  Sender: FDA-Public Use
  Company Number: GB-JNJFOC-20161219224

PATIENT
  Sex: Female

DRUGS (1)
  1. STELARA [Suspect]
     Active Substance: USTEKINUMAB
     Indication: PSORIATIC ARTHROPATHY
     Dosage: ON WEEK 0
     Route: 058

REACTIONS (6)
  - Psoriasis [Unknown]
  - Pain [Unknown]
  - Oropharyngeal pain [Unknown]
  - Headache [Unknown]
  - Lymphadenopathy [Unknown]
  - Nasopharyngitis [Unknown]
